FAERS Safety Report 9098356 (Version 1)
Quarter: 2013Q1

REPORT INFORMATION
  Report Type: Spontaneous
  Country: ZA (occurrence: ZA)
  Receive Date: 20130213
  Receipt Date: 20130213
  Transmission Date: 20140127
  Serious: Yes (Life-Threatening, Hospitalization)
  Sender: FDA-Public Use
  Company Number: PHHY2013ZA010610

PATIENT
  Age: 20 Year
  Sex: Female

DRUGS (2)
  1. AMITRIPTYLINE [Suspect]
  2. PARACETAMOL [Suspect]

REACTIONS (13)
  - Cardiotoxicity [Recovered/Resolved]
  - Blood pressure decreased [Recovered/Resolved]
  - Electrocardiogram QRS complex prolonged [Recovered/Resolved]
  - Heart rate increased [Recovered/Resolved]
  - Bundle branch block right [Recovered/Resolved]
  - Status epilepticus [Recovered/Resolved]
  - Convulsion [Recovered/Resolved]
  - Somnolence [Recovered/Resolved]
  - Grand mal convulsion [Recovered/Resolved]
  - Respiratory arrest [Recovered/Resolved]
  - Haemodynamic instability [Recovered/Resolved]
  - Intentional overdose [Recovered/Resolved]
  - Toxicity to various agents [Recovered/Resolved]
